FAERS Safety Report 6137388-X (Version None)
Quarter: 2009Q1

REPORT INFORMATION
  Report Type: 
  Country: None (occurrence: None)
  Receive Date: 20090326
  Receipt Date: 20090321
  Transmission Date: 20090719
  Serious: Yes (Life-Threatening)
  Sender: FDA-Public Use
  Company Number: 218822

PATIENT
  Age: 38 Year
  Sex: Male

DRUGS (5)
  1. DOPAMINE HCL [Suspect]
     Indication: VASOPRESSIVE THERAPY
     Dosage: 5-20 MCG/KG/MIN
  2. PHENYLPHRINE HCL INJ USP 1% (PHENYLEPHRINE) [Suspect]
     Indication: VASOPRESSIVE THERAPY
     Dosage: 0.5-1.75 MCG/KG/MIN
  3. PROPOFOL [Suspect]
     Indication: VASOPRESSIVE THERAPY
     Dosage: 75-125 MCG/KG/MIN, 95-125 MCG/KG/MIN
  4. MANNITOL [Concomitant]
  5. SALINE [Concomitant]

REACTIONS (6)
  - CARDIAC ENZYMES INCREASED [None]
  - COMA [None]
  - ELECTROCARDIOGRAM ST SEGMENT ELEVATION [None]
  - METABOLIC ACIDOSIS [None]
  - PROPOFOL INFUSION SYNDROME [None]
  - TACHYARRHYTHMIA [None]
